FAERS Safety Report 5712189-2 (Version None)
Quarter: 2008Q2

REPORT INFORMATION
  Report Type: 
  Country: None (occurrence: None)
  Receive Date: 20080422
  Receipt Date: 20080404
  Transmission Date: 20081010
  Serious: No
  Sender: FDA-Public Use
  Company Number: US-BAYER-200819230NA

PATIENT
  Age: 30 Year
  Sex: Female
  Weight: 57 kg

DRUGS (3)
  1. MIRENA [Suspect]
     Indication: CONTRACEPTION
     Route: 015
     Dates: start: 20070809, end: 20080401
  2. SPIRONOLACTONE [Concomitant]
  3. ROZEREM [Concomitant]

REACTIONS (9)
  - AMENORRHOEA [None]
  - ARTHRALGIA [None]
  - BLEPHAROSPASM [None]
  - BREAST TENDERNESS [None]
  - HYPOAESTHESIA [None]
  - MUSCLE SPASMS [None]
  - PREMENSTRUAL SYNDROME [None]
  - PROCEDURAL PAIN [None]
  - VAGINAL HAEMORRHAGE [None]
